FAERS Safety Report 8750642 (Version 2)
Quarter: 2012Q4

REPORT INFORMATION
  Report Type: Spontaneous
  Country: CN (occurrence: None)
  Receive Date: 20120810
  Receipt Date: 20120827
  Transmission Date: 20130627
  Serious: Yes (Death, Hospitalization, Other)
  Sender: FDA-Public Use
  Company Number: 2012P1052047

PATIENT
  Age: 51 Year
  Sex: Male

DRUGS (2)
  1. ALBENDAZOLE [Suspect]
     Indication: INFECTION PARASITIC
     Dosage: 400 MG;PO
     Route: 048
  2. ALBENDAZOLE [Suspect]
     Dosage: 400 MG;PO
     Route: 048

REACTIONS (3)
  - Encephalopathy [None]
  - Small intestine carcinoma [None]
  - Encephalitis [None]
